FAERS Safety Report 25940051 (Version 2)
Quarter: 2025Q4

REPORT INFORMATION
  Report Type: Spontaneous
  Country: US (occurrence: US)
  Receive Date: 20251020
  Receipt Date: 20251027
  Transmission Date: 20260117
  Serious: Yes (Other)
  Sender: NOVARTIS
  Company Number: US-002147023-NVSC2025US157648

PATIENT

DRUGS (3)
  1. EVEROLIMUS [Suspect]
     Active Substance: EVEROLIMUS
     Indication: Renal cell carcinoma stage IV
     Route: 065
  2. CABOMETYX [Suspect]
     Active Substance: CABOZANTINIB S-MALATE
     Indication: Renal cell carcinoma stage IV
     Dosage: UNK
     Route: 065
  3. LENVATINIB [Suspect]
     Active Substance: LENVATINIB
     Indication: Renal cell carcinoma stage IV
     Dosage: UNK
     Route: 065

REACTIONS (2)
  - Renal cell carcinoma [Unknown]
  - Malignant neoplasm progression [Not Recovered/Not Resolved]
